FAERS Safety Report 8825446 (Version 1)
Quarter: 2012Q4

REPORT INFORMATION
  Report Type: 
  Country: US (occurrence: US)
  Receive Date: 20121004
  Receipt Date: 20121004
  Transmission Date: 20130627
  Serious: Yes (Death, Other)
  Sender: FDA-Public Use
  Company Number: US-ROCHE-1130858

PATIENT
  Sex: Female

DRUGS (1)
  1. RITUXAN [Suspect]
     Indication: CHRONIC LYMPHOCYTIC LEUKAEMIA
     Route: 065
     Dates: start: 20000906

REACTIONS (7)
  - Death [Fatal]
  - Disease progression [Unknown]
  - Dyspnoea [Unknown]
  - Pyrexia [Unknown]
  - Arthralgia [Unknown]
  - Haemorrhoids [Unknown]
  - Fatigue [Unknown]
